FAERS Safety Report 7568260-6 (Version None)
Quarter: 2011Q2

REPORT INFORMATION
  Report Type: 
  Country: None (occurrence: None)
  Receive Date: 20110623
  Receipt Date: 20110615
  Transmission Date: 20111010
  Serious: Yes (Hospitalization, Other)
  Sender: FDA-Public Use
  Company Number: FR-ROCHE-745993

PATIENT
  Sex: Male
  Weight: 60 kg

DRUGS (10)
  1. PEGINTERFERON ALFA-2A [Suspect]
     Dosage: LAST DOSE PRIOR TO SAE: 17 NOVEMBER 2010
     Route: 058
     Dates: start: 20100607
  2. MOXIFLOXACIN HCL [Concomitant]
  3. ALFUZOSINE [Concomitant]
     Dosage: DRUG NAME REPORTED AS ALFUZOSINE LP 10 MG
  4. TRAMADOL HCL [Concomitant]
  5. RIBAVIRIN [Suspect]
     Dosage: LAST DOSE PRIOR TO SAE: 17 NOVEMBER 2010
     Route: 048
     Dates: start: 20100607
  6. MUCOMYST [Concomitant]
  7. ALFUZOSIN HCL [Concomitant]
     Dosage: DRUG NAME REPORTED AS XATRAL LP 10 MG
  8. IMOVANE [Concomitant]
  9. EPOETIN BETA [Suspect]
     Dosage: DOSE: 3000 UI
     Route: 058
  10. ZOFENIL [Concomitant]
     Dosage: DRUG NAME REPORTED AS ZAFENIL 15 MG

REACTIONS (2)
  - ANAEMIA [None]
  - PREDISPOSITION TO DISEASE [None]
